FAERS Safety Report 25359515 (Version 1)
Quarter: 2025Q2

REPORT INFORMATION
  Report Type: Spontaneous
  Country: US (occurrence: US)
  Receive Date: 20250526
  Receipt Date: 20250526
  Transmission Date: 20250716
  Serious: Yes (Life-Threatening, Hospitalization, Other)
  Sender: ELITE
  Company Number: US-ELITEPHARMA-2025ELLIT00116

PATIENT
  Age: 49 Year
  Sex: Female

DRUGS (3)
  1. METHOTREXATE [Suspect]
     Active Substance: METHOTREXATE
     Indication: Granulomatosis with polyangiitis
     Route: 065
  2. RITUXIMAB [Concomitant]
     Active Substance: RITUXIMAB
     Indication: Granulomatosis with polyangiitis
     Route: 065
  3. PREDNISONE [Concomitant]
     Active Substance: PREDNISONE
     Indication: Granulomatosis with polyangiitis
     Route: 065

REACTIONS (6)
  - Hyperammonaemia [Recovering/Resolving]
  - Toxicity to various agents [Unknown]
  - Acute respiratory failure [Recovering/Resolving]
  - Ureaplasma infection [Recovering/Resolving]
  - Mycoplasma infection [Recovering/Resolving]
  - Product use in unapproved indication [Unknown]
